FAERS Safety Report 7492829-0 (Version None)
Quarter: 2011Q2

REPORT INFORMATION
  Report Type: 
  Country: None (occurrence: None)
  Receive Date: 20110520
  Receipt Date: 20110516
  Transmission Date: 20111010
  Serious: Yes (Other)
  Sender: FDA-Public Use
  Company Number: US-BRISTOL-MYERS SQUIBB COMPANY-15748460

PATIENT
  Age: 64 Year
  Sex: Female
  Weight: 58 kg

DRUGS (1)
  1. COUMADIN [Suspect]
     Indication: PULMONARY THROMBOSIS
     Dosage: COUMADIN 7.5 MG MONDAY,WEDNESDAY,FRIDAY,SATURDAY+ SUNDAY,COUMADIN 5MG TUES+THURS
     Route: 048

REACTIONS (2)
  - AGGRESSION [None]
  - INTERNATIONAL NORMALISED RATIO INCREASED [None]
